FAERS Safety Report 17728513 (Version 1)
Quarter: 2020Q2

REPORT INFORMATION
  Report Type: Spontaneous
  Country: US (occurrence: US)
  Receive Date: 20200429
  Receipt Date: 20200429
  Transmission Date: 20200714
  Serious: No
  Sender: FDA-Public Use
  Company Number: None

PATIENT
  Age: 48 Year
  Sex: Male
  Weight: 119 kg

DRUGS (1)
  1. ESOMEPRAZOLE MAG DR 40 [Suspect]
     Active Substance: ESOMEPRAZOLE
     Indication: GASTROOESOPHAGEAL REFLUX DISEASE
     Dates: start: 201501, end: 202004

REACTIONS (2)
  - Therapeutic response changed [None]
  - Drug ineffective [None]

NARRATIVE: CASE EVENT DATE: 20200424
